FAERS Safety Report 19816899 (Version 1)
Quarter: 2021Q3

REPORT INFORMATION
  Report Type: Spontaneous
  Country: GB (occurrence: GB)
  Receive Date: 20210910
  Receipt Date: 20210910
  Transmission Date: 20211014
  Serious: Yes (Other)
  Sender: FDA-Public Use
  Company Number: GB-TEVA-2021-GB-1950810

PATIENT
  Age: 29 Year
  Sex: Female
  Weight: 53 kg

DRUGS (3)
  1. MELATONIN [Concomitant]
     Active Substance: MELATONIN
     Dosage: 4 MILLIGRAM DAILY; IN THE EVENING.
  2. AMLODIPINE [Suspect]
     Active Substance: AMLODIPINE BESYLATE
     Indication: HYPERTENSION
     Dosage: 5 MG
     Route: 048
     Dates: start: 20210824, end: 20210825
  3. XAGGITIN XL [Concomitant]
     Dosage: 36 MILLIGRAM DAILY; IN THE MORNING.

REACTIONS (2)
  - Headache [Recovered/Resolved]
  - Depression [Recovered/Resolved with Sequelae]

NARRATIVE: CASE EVENT DATE: 20210824
